FAERS Safety Report 9804400 (Version 1)
Quarter: 2014Q1

REPORT INFORMATION
  Report Type: Spontaneous
  Country: US (occurrence: US)
  Receive Date: 20140108
  Receipt Date: 20140108
  Transmission Date: 20141002
  Serious: Yes (Death, Hospitalization, Other)
  Sender: FDA-Public Use
  Company Number: US-UCBSA-107518

PATIENT
  Age: 64 Year
  Sex: Female

DRUGS (5)
  1. ALPRAZOLAM [Suspect]
     Dosage: ROUTE: INGESTION
     Route: 048
  2. DILTIAZEM (EXTENDED RELEASE) [Suspect]
     Dosage: ROUTE: INGESTION, EXTENDED RELEASE, 240 MG, #11
  3. METOPROLOL (EXTENDED RELEASE) [Suspect]
     Dosage: ROUTE: INGESTION, EXTENDED RELEASE,50 MG, #18
  4. SITAGLIPTIN [Suspect]
     Dosage: ROUTE: INGESTION, 25 MG#6
  5. CITALOPRAM [Suspect]
     Dosage: ROUTE: INGESTION, #20

REACTIONS (1)
  - Completed suicide [Fatal]
